FAERS Safety Report 20619355 (Version 2)
Quarter: 2022Q2

REPORT INFORMATION
  Report Type: Spontaneous
  Country: US (occurrence: US)
  Receive Date: 20220322
  Receipt Date: 20220422
  Transmission Date: 20220720
  Serious: No
  Sender: FDA-Public Use
  Company Number: US-BIOVITRUM-2022US04082

PATIENT
  Sex: Female

DRUGS (2)
  1. KINERET [Suspect]
     Active Substance: ANAKINRA
     Indication: Rheumatoid arthritis
     Route: 058
     Dates: start: 20220302
  2. KINERET [Suspect]
     Active Substance: ANAKINRA
     Route: 058
     Dates: start: 20220302

REACTIONS (5)
  - Sinusitis [Unknown]
  - Diarrhoea [Unknown]
  - Abdominal pain [Unknown]
  - Injection site erythema [Unknown]
  - Product dose omission issue [Unknown]
